FAERS Safety Report 8020936-2 (Version None)
Quarter: 2011Q4

REPORT INFORMATION
  Report Type: 
  Country: None (occurrence: None)
  Receive Date: 20111228
  Receipt Date: 20111216
  Transmission Date: 20120403
  Serious: Yes (Other)
  Sender: FDA-Public Use
  Company Number: NGX_00795_2011

PATIENT
  Sex: Female

DRUGS (1)
  1. QUTENZA [Suspect]
     Indication: NEURALGIA
     Dosage: (DF TOPICAL)
     Route: 061

REACTIONS (4)
  - APPLICATION SITE PAIN [None]
  - SKIN ATROPHY [None]
  - APPLICATION SITE ERYTHEMA [None]
  - APPLICATION SITE VESICLES [None]
